FAERS Safety Report 13500659 (Version 2)
Quarter: 2017Q2

REPORT INFORMATION
  Report Type: Spontaneous
  Country: US (occurrence: US)
  Receive Date: 20170501
  Receipt Date: 20170606
  Transmission Date: 20170830
  Serious: Yes (Other)
  Sender: FDA-Public Use
  Company Number: US-BAUSCH-BL-2017-010933

PATIENT
  Age: 53 Year
  Sex: Male
  Weight: 83.99 kg

DRUGS (1)
  1. ADVANCED EYE RELIEF/EYE WASH [Suspect]
     Active Substance: WATER
     Indication: IRRIGATION THERAPY
     Route: 065
     Dates: start: 20170411, end: 20170411

REACTIONS (6)
  - Eye irritation [Recovered/Resolved]
  - Visual impairment [Recovering/Resolving]
  - Eye disorder [Recovering/Resolving]
  - Corneal disorder [Recovering/Resolving]
  - Eye pain [Recovered/Resolved]
  - Vision blurred [Recovering/Resolving]

NARRATIVE: CASE EVENT DATE: 20170411
